FAERS Safety Report 10524303 (Version 1)
Quarter: 2014Q4

REPORT INFORMATION
  Report Type: Spontaneous
  Country: US (occurrence: None)
  Receive Date: 20141015
  Receipt Date: 20141015
  Transmission Date: 20150528
  Serious: Yes (Other)
  Sender: FDA-Public Use
  Company Number: None

PATIENT
  Age: 64 Year
  Sex: Female
  Weight: 68.2 kg

DRUGS (4)
  1. IC METRONIDAZOLE 500 MG TABLETS UNKNOWN [Suspect]
     Active Substance: METRONIDAZOLE
     Indication: DIVERTICULITIS
     Route: 048
     Dates: start: 20120820, end: 20120825
  2. LEVOFLOXACIN. [Suspect]
     Active Substance: LEVOFLOXACIN
     Indication: URINARY TRACT INFECTION
     Route: 048
     Dates: start: 20120820, end: 20120825
  3. LEVOFLOXACIN. [Suspect]
     Active Substance: LEVOFLOXACIN
     Indication: DIVERTICULITIS
     Route: 048
     Dates: start: 20120820, end: 20120825
  4. IC METRONIDAZOLE 500 MG TABLETS UNKNOWN [Suspect]
     Active Substance: METRONIDAZOLE
     Indication: URINARY TRACT INFECTION
     Route: 048
     Dates: start: 20120820, end: 20120825

REACTIONS (15)
  - Depression [None]
  - Throat irritation [None]
  - Arthralgia [None]
  - Gait disturbance [None]
  - Eructation [None]
  - Chromaturia [None]
  - Pyrexia [None]
  - Headache [None]
  - Weight decreased [None]
  - Hypophagia [None]
  - Crying [None]
  - Nausea [None]
  - Insomnia [None]
  - Mood altered [None]
  - Decreased appetite [None]

NARRATIVE: CASE EVENT DATE: 20120820
